FAERS Safety Report 9118045 (Version 1)
Quarter: 2013Q1

REPORT INFORMATION
  Report Type: Report from Study
  Country: US (occurrence: US)
  Receive Date: 20130129
  Receipt Date: 20130129
  Transmission Date: 20140127
  Serious: No
  Sender: FDA-Public Use
  Company Number: US-ABBOTT-12P-163-0939456-00

PATIENT
  Age: 72 Year
  Sex: Female

DRUGS (6)
  1. HUMIRA 40 MG/0.8 ML PEN [Suspect]
     Indication: RHEUMATOID ARTHRITIS
     Dates: start: 20111027
  2. COZARIL [Concomitant]
     Indication: HYPERTENSION
     Dosage: 50MG DAILY
  3. SYNTHROID [Concomitant]
     Indication: HYPOTHYROIDISM
  4. PEPCID [Concomitant]
     Indication: ANTACID THERAPY
     Dosage: DAILY
  5. FOLIC ACID [Concomitant]
     Indication: PRODUCT USED FOR UNKNOWN INDICATION
     Dosage: DAILY
  6. VITAMINS [Concomitant]
     Indication: PRODUCT USED FOR UNKNOWN INDICATION
     Dosage: DAILY

REACTIONS (2)
  - Dysgeusia [Not Recovered/Not Resolved]
  - Tooth infection [Not Recovered/Not Resolved]
